FAERS Safety Report 12375768 (Version 1)
Quarter: 2016Q2

REPORT INFORMATION
  Report Type: Report from Study
  Country: IN (occurrence: IN)
  Receive Date: 20160517
  Receipt Date: 20160517
  Transmission Date: 20160815
  Serious: Yes (Other)
  Sender: FDA-Public Use
  Company Number: IN-009507513-1605IND005010

PATIENT
  Age: 37 Year
  Sex: Male

DRUGS (1)
  1. SITAGLIPTIN PHOSPHATE (+) METFORMIN HYDROCHLORIDE [Suspect]
     Active Substance: METFORMIN HYDROCHLORIDE\SITAGLIPTIN PHOSPHATE
     Indication: DIABETES MELLITUS
     Dosage: 1 DF, OD (STRENGTH: 50/1000, UNITS NOT PROVIDED)
     Route: 048

REACTIONS (1)
  - Tuberculosis [Unknown]
